FAERS Safety Report 8994929 (Version 1)
Quarter: 2013Q1

REPORT INFORMATION
  Report Type: Spontaneous
  Country: US (occurrence: US)
  Receive Date: 20130102
  Receipt Date: 20130102
  Transmission Date: 20140127
  Serious: No
  Sender: FDA-Public Use
  Company Number: US-TEVA-378519USA

PATIENT
  Sex: Female

DRUGS (2)
  1. AMRIX [Suspect]
     Indication: PAIN
     Dosage: 30 MILLIGRAM DAILY; Q5PM
     Dates: start: 20121220
  2. AMRIX [Suspect]
     Indication: MUSCLE SPASMS

REACTIONS (1)
  - Drug effect decreased [Not Recovered/Not Resolved]
